FAERS Safety Report 5076964-2 (Version None)
Quarter: 2006Q3

REPORT INFORMATION
  Report Type: 
  Country: None (occurrence: None)
  Receive Date: 20060810
  Receipt Date: 20060809
  Transmission Date: 20061208
  Serious: Yes (Hospitalization)
  Sender: FDA-Public Use
  Company Number: US-GLAXOSMITHKLINE-A0616026A

PATIENT
  Age: 89 Year
  Sex: Male

DRUGS (2)
  1. COREG [Suspect]
     Indication: CARDIAC FAILURE CONGESTIVE
     Route: 048
  2. TOPROL-XL [Concomitant]

REACTIONS (2)
  - BLOOD PRESSURE DECREASED [None]
  - INFECTION [None]
